FAERS Safety Report 9601353 (Version 1)
Quarter: 2013Q4

REPORT INFORMATION
  Report Type: Spontaneous
  Country: US (occurrence: US)
  Receive Date: 20131007
  Receipt Date: 20131007
  Transmission Date: 20140711
  Serious: No
  Sender: FDA-Public Use
  Company Number: US-B.I. PHARMACEUTICALS,INC./RIDGEFIELD-2013-BI-30546BP

PATIENT
  Age: 72 Year
  Sex: Female
  Weight: 54 kg

DRUGS (6)
  1. PRADAXA [Suspect]
     Indication: ATRIAL FIBRILLATION
     Dosage: 300 MG
     Route: 048
     Dates: start: 20130101
  2. DILTIAZEM [Concomitant]
     Dosage: 120 MG
     Route: 048
  3. SPIRONLACTONE [Concomitant]
     Indication: OEDEMA
     Dosage: 25 MG
     Route: 048
  4. BUMETANIDE [Concomitant]
     Indication: OEDEMA
     Dosage: 2 MG
     Route: 048
  5. MIRAPEX [Concomitant]
     Dosage: 1 MG
     Route: 048
  6. ATORVASTATIN [Concomitant]
     Indication: BLOOD CHOLESTEROL
     Dosage: 20 MG
     Route: 048

REACTIONS (3)
  - Fall [Recovered/Resolved]
  - Laceration [Not Recovered/Not Resolved]
  - Skin infection [Not Recovered/Not Resolved]
